FAERS Safety Report 7568464-2 (Version None)
Quarter: 2011Q2

REPORT INFORMATION
  Report Type: 
  Country: None (occurrence: None)
  Receive Date: 20110623
  Receipt Date: 20110610
  Transmission Date: 20111010
  Serious: Yes (Hospitalization)
  Sender: FDA-Public Use
  Company Number: US-ELI_LILLY_AND_COMPANY-US201103008932

PATIENT
  Sex: Female
  Weight: 89.705 kg

DRUGS (21)
  1. OMEPRAZOLE [Concomitant]
     Dosage: 20 MG, QD
     Route: 048
  2. HYDROCODONE [Concomitant]
     Dosage: UNK, PRN
  3. KLONOPIN [Concomitant]
     Dosage: 2 MG, TID
     Route: 048
  4. COLACE [Concomitant]
     Dosage: 100 MG, OTHER
     Route: 048
  5. PROZAC [Concomitant]
     Dosage: 20 MG, QD
     Route: 048
  6. VISTARIL [Concomitant]
  7. IBUPROFEN [Concomitant]
     Dosage: 800 MG, TID
     Route: 048
  8. HYOSCYAMINE SULFATE [Concomitant]
     Dosage: 0.125 MG, EVERY 4 HRS
     Route: 048
  9. ZYPREXA [Suspect]
     Indication: INSOMNIA
     Dosage: 5 MG, QD
     Route: 048
     Dates: start: 20110325
  10. MELLARIL [Concomitant]
     Dosage: 25 MG, OTHER
     Route: 048
  11. ZYPREXA [Suspect]
     Dosage: 2.5 MG, UNK
     Route: 048
  12. ZYPREXA [Suspect]
     Dosage: 5 MG, QD
     Route: 048
     Dates: end: 20110327
  13. VALIUM [Concomitant]
     Dosage: UNK, PRN
  14. ATIVAN [Concomitant]
  15. IMITREX [Concomitant]
     Route: 058
  16. WELLBUTRIN [Concomitant]
  17. NORVASC [Concomitant]
     Dosage: 5 MG, QD
     Route: 048
  18. AMBIEN [Concomitant]
  19. KETOROLAC TROMETHAMINE [Concomitant]
     Dosage: 10 MG, UNK
     Route: 048
  20. TRETINOIN [Concomitant]
     Dosage: UNK, QD
  21. IMITREX [Concomitant]
     Dosage: 100 MG, UNK
     Route: 048

REACTIONS (15)
  - PARALYSIS [None]
  - INSOMNIA [None]
  - CONFUSIONAL STATE [None]
  - PSYCHOTIC DISORDER [None]
  - FIBROMYALGIA [None]
  - THROAT TIGHTNESS [None]
  - BREAST ENGORGEMENT [None]
  - FEELING ABNORMAL [None]
  - BILIARY COLIC [None]
  - ARTHRALGIA [None]
  - ADVERSE EVENT [None]
  - VOCAL CORD DISORDER [None]
  - MEDICATION ERROR [None]
  - HALLUCINATIONS, MIXED [None]
  - OFF LABEL USE [None]
